FAERS Safety Report 20153595 (Version 3)
Quarter: 2022Q4

REPORT INFORMATION
  Report Type: Spontaneous
  Country: US (occurrence: US)
  Receive Date: 20211206
  Receipt Date: 20221028
  Transmission Date: 20230112
  Serious: Yes (Death, Hospitalization, Other)
  Sender: FDA-Public Use
  Company Number: US-009507513-2112USA000576

PATIENT
  Age: 69 Year
  Sex: Male

DRUGS (6)
  1. KEYTRUDA [Suspect]
     Active Substance: PEMBROLIZUMAB
     Indication: Neuroendocrine carcinoma metastatic
     Dosage: UNK
  2. KEYTRUDA [Suspect]
     Active Substance: PEMBROLIZUMAB
     Indication: Metastases to lymph nodes
  3. KEYTRUDA [Suspect]
     Active Substance: PEMBROLIZUMAB
     Indication: Metastases to bone
  4. CISPLATIN\ETOPOSIDE [Concomitant]
     Active Substance: CISPLATIN\ETOPOSIDE
     Indication: Neuroendocrine carcinoma metastatic
     Dosage: UNK
  5. CISPLATIN\ETOPOSIDE [Concomitant]
     Active Substance: CISPLATIN\ETOPOSIDE
     Indication: Metastases to lymph nodes
  6. CISPLATIN\ETOPOSIDE [Concomitant]
     Active Substance: CISPLATIN\ETOPOSIDE
     Indication: Metastases to bone

REACTIONS (7)
  - Cardiogenic shock [Fatal]
  - Myocarditis [Fatal]
  - Syncope [Unknown]
  - Immune-mediated nephritis [Unknown]
  - Transplant rejection [Unknown]
  - Eyelid ptosis [Unknown]
  - Asthenia [Unknown]
